FAERS Safety Report 20800900 (Version 1)
Quarter: 2022Q2

REPORT INFORMATION
  Report Type: Spontaneous
  Country: US (occurrence: US)
  Receive Date: 20220509
  Receipt Date: 20220509
  Transmission Date: 20220720
  Serious: Yes (Hospitalization, Other)
  Sender: FDA-Public Use
  Company Number: US-SA-SAC20220506000316

PATIENT
  Age: 55 Year
  Sex: Male

DRUGS (1)
  1. NEXVIAZYME [Suspect]
     Active Substance: AVALGLUCOSIDASE ALFA-NGPT
     Indication: Glycogen storage disease type II
     Dosage: 2100 MG, QOW
     Route: 042

REACTIONS (3)
  - Pneumonia [Unknown]
  - Sepsis [Unknown]
  - Renal failure [Unknown]

NARRATIVE: CASE EVENT DATE: 20220401
